FAERS Safety Report 16728348 (Version 2)
Quarter: 2019Q3

REPORT INFORMATION
  Report Type: Spontaneous
  Country: JP (occurrence: JP)
  Receive Date: 20190822
  Receipt Date: 20190924
  Transmission Date: 20191005
  Serious: No
  Sender: FDA-Public Use
  Company Number: JP-SA-2019SA227586

PATIENT
  Age: 9 Year
  Sex: Female

DRUGS (7)
  1. XYZAL [Suspect]
     Active Substance: LEVOCETIRIZINE DIHYDROCHLORIDE
     Indication: FOOD ALLERGY
  2. ROZEREM [Concomitant]
     Active Substance: RAMELTEON
     Dosage: UNK
  3. MONTELUKAST SODIUM. [Concomitant]
     Active Substance: MONTELUKAST SODIUM
     Dosage: UNK
  4. XYZAL [Suspect]
     Active Substance: LEVOCETIRIZINE DIHYDROCHLORIDE
     Indication: DERMATITIS ALLERGIC
     Dosage: 2.5 MG, BID
     Route: 048
     Dates: start: 2017
  5. XYZAL [Suspect]
     Active Substance: LEVOCETIRIZINE DIHYDROCHLORIDE
     Indication: ASTHMA
  6. XYZAL [Suspect]
     Active Substance: LEVOCETIRIZINE DIHYDROCHLORIDE
     Indication: ATOPY
  7. XYZAL [Suspect]
     Active Substance: LEVOCETIRIZINE DIHYDROCHLORIDE
     Indication: OFF LABEL USE

REACTIONS (7)
  - Insomnia [Recovered/Resolved]
  - Sleep talking [Unknown]
  - Tremor [Unknown]
  - Restlessness [Unknown]
  - Sleep disorder due to general medical condition, insomnia type [Unknown]
  - Anger [Unknown]
  - Irritability [Recovered/Resolved]

NARRATIVE: CASE EVENT DATE: 2018
